FAERS Safety Report 8605814-X (Version None)
Quarter: 2012Q3

REPORT INFORMATION
  Report Type: 
  Country: None (occurrence: None)
  Receive Date: 20120820
  Receipt Date: 20120813
  Transmission Date: 20120928
  Serious: Yes (Other)
  Sender: FDA-Public Use
  Company Number: US-GLAXOSMITHKLINE-A0975187A

PATIENT
  Age: 29 Year
  Sex: Female

DRUGS (1)
  1. FLOLAN [Suspect]
     Indication: PRODUCT USED FOR UNKNOWN INDICATION
     Dosage: 24NG CONTINUOUS
     Route: 042
     Dates: start: 20110928

REACTIONS (2)
  - CATHETER SITE HAEMORRHAGE [None]
  - RASH [None]
